FAERS Safety Report 20227472 (Version 1)
Quarter: 2021Q4

REPORT INFORMATION
  Report Type: Report from Study
  Country: PT (occurrence: None)
  Receive Date: 20211224
  Receipt Date: 20211224
  Transmission Date: 20220303
  Serious: Yes (Other)
  Sender: FDA-Public Use
  Company Number: 2021A886760

PATIENT
  Age: 4004 Day
  Sex: Male

DRUGS (1)
  1. SELUMETINIB [Suspect]
     Active Substance: SELUMETINIB
     Route: 048
     Dates: start: 20190306

REACTIONS (11)
  - Paronychia [Unknown]
  - Proteinuria [Unknown]
  - Neutropenia [Unknown]
  - Blood lactate dehydrogenase increased [Unknown]
  - Blood bilirubin decreased [Unknown]
  - High density lipoprotein decreased [Unknown]
  - Blood phosphorus increased [Unknown]
  - C-reactive protein increased [Unknown]
  - Haemoglobin decreased [Unknown]
  - Blood creatine phosphokinase increased [Recovered/Resolved]
  - Aspartate aminotransferase increased [Unknown]

NARRATIVE: CASE EVENT DATE: 20190306
